FAERS Safety Report 5114576-2 (Version None)
Quarter: 2006Q3

REPORT INFORMATION
  Report Type: 
  Country: None (occurrence: None)
  Receive Date: 20060926
  Receipt Date: 20060913
  Transmission Date: 20061208
  Serious: Yes (Hospitalization)
  Sender: FDA-Public Use
  Company Number: GBWYE911313SEP06

PATIENT
  Sex: Female
  Weight: 70 kg

DRUGS (9)
  1. ENBREL [Suspect]
     Indication: RHEUMATOID ARTHRITIS
     Route: 058
     Dates: start: 20040817, end: 20060103
  2. ALENDRONATE SODIUM [Concomitant]
     Dosage: UNKNOWN
  3. ATORVASTATIN [Concomitant]
     Dosage: UNKNOWN
  4. VENTOLIN [Concomitant]
     Dosage: UNKNOWN
  5. DILTIAZEM HCL [Concomitant]
     Dosage: UNKNOWN
  6. METFORMIN [Concomitant]
     Dosage: UNKNOWN
  7. RAMIPRIL [Concomitant]
     Dosage: UNKNOWN
  8. PREDNISOLONE [Concomitant]
     Dosage: UNKNOWN
  9. ACETAMINOPHEN W/ CODEINE [Concomitant]
     Dosage: UNKNOWN

REACTIONS (1)
  - ANGINA PECTORIS [None]
